FAERS Safety Report 15685749 (Version 3)
Quarter: 2019Q1

REPORT INFORMATION
  Report Type: Spontaneous
  Country: BR (occurrence: BR)
  Receive Date: 20181204
  Receipt Date: 20190131
  Transmission Date: 20190417
  Serious: Yes (Hospitalization)
  Sender: FDA-Public Use
  Company Number: BR-SA-2018SA326787

PATIENT
  Sex: Female
  Weight: 94 kg

DRUGS (9)
  1. FUROSEMIDE. [Concomitant]
     Active Substance: FUROSEMIDE
     Indication: CARDIAC DISORDER
     Dosage: 2 TAB DAILY
     Route: 048
     Dates: start: 20181110
  2. REGENESIS [ASCORBIC ACID;BETACAROTENE;BIOTIN;CALCIUM PANTOTHENATE;COPP [Concomitant]
     Indication: VITAMIN SUPPLEMENTATION
     Dosage: 1 DF, QD
     Route: 048
     Dates: start: 20181118
  3. CARVEDILOL. [Concomitant]
     Active Substance: CARVEDILOL
     Indication: CARDIAC DISORDER
     Dosage: 2 TABLET DAILY
     Route: 048
     Dates: start: 20181110
  4. SPIRONOLACTONE. [Concomitant]
     Active Substance: SPIRONOLACTONE
     Indication: CARDIAC DISORDER
     Dosage: 1 TABLET DAIL;Y
     Route: 048
     Dates: start: 20181110
  5. CLEXANE [Suspect]
     Active Substance: ENOXAPARIN SODIUM
     Indication: CARDIAC VALVE DISEASE
     Dosage: 1 DF 1 SYRINGE , QD
     Route: 058
     Dates: start: 20181110
  6. CLEXANE [Suspect]
     Active Substance: ENOXAPARIN SODIUM
     Indication: PULMONARY EMBOLISM
  7. DIGOXIN. [Concomitant]
     Active Substance: DIGOXIN
     Indication: CARDIAC DISORDER
     Dosage: 0.5 DF, QD
     Route: 048
     Dates: start: 201807
  8. POTASSIUM BICARBONATE. [Concomitant]
     Active Substance: POTASSIUM BICARBONATE
     Indication: CARDIAC DISORDER
     Dosage: 1 TAB DAILY
     Route: 048
     Dates: start: 20181110
  9. CLEXANE [Suspect]
     Active Substance: ENOXAPARIN SODIUM
     Indication: ANTICOAGULANT THERAPY

REACTIONS (4)
  - Endotracheal intubation [Unknown]
  - Hospitalisation [Unknown]
  - Adverse event [Unknown]
  - Exposure during pregnancy [Unknown]
